FAERS Safety Report 19805325 (Version 2)
Quarter: 2021Q3

REPORT INFORMATION
  Report Type: Spontaneous
  Country: ES (occurrence: ES)
  Receive Date: 20210908
  Receipt Date: 20210922
  Transmission Date: 20211014
  Serious: Yes (Other)
  Sender: FDA-Public Use
  Company Number: ES-MYLANLABS-2021M1058482

PATIENT
  Age: 78 Year
  Sex: Male

DRUGS (33)
  1. PREDNISONE. [Suspect]
     Active Substance: PREDNISONE
     Dosage: OTHER
     Route: 058
  2. VINCRISTINE [Suspect]
     Active Substance: VINCRISTINE
     Indication: B-CELL LYMPHOMA
     Dosage: UNK
     Route: 065
  3. RITUXIMAB. [Suspect]
     Active Substance: RITUXIMAB
     Dosage: OTHER
     Route: 058
  4. RITUXIMAB. [Suspect]
     Active Substance: RITUXIMAB
     Dosage: UNK
     Route: 042
     Dates: start: 20210413
  5. CYCLOPHOSPHAMIDE. [Suspect]
     Active Substance: CYCLOPHOSPHAMIDE
     Indication: B-CELL LYMPHOMA
     Dosage: UNK
     Route: 065
  6. OXALIPLATIN. [Suspect]
     Active Substance: OXALIPLATIN
     Dosage: UNK
     Route: 042
     Dates: start: 20201112, end: 20210127
  7. OMEPRAZOLE. [Concomitant]
     Active Substance: OMEPRAZOLE
     Dosage: UNK
  8. GEMCITABINE. [Suspect]
     Active Substance: GEMCITABINE
     Dosage: OTHER
     Route: 058
  9. PERMIXON [Concomitant]
     Active Substance: HERBALS\SAW PALMETTO
     Dosage: UNK
  10. VOLUTSA [Concomitant]
     Active Substance: SOLIFENACIN\TAMSULOSIN
     Dosage: UNK
  11. ACYCLOVIR                          /00587301/ [Concomitant]
     Active Substance: ACYCLOVIR
     Dosage: UNK
  12. LIXIANA [Concomitant]
     Active Substance: EDOXABAN TOSYLATE
     Dosage: 60 MILLIGRAM
  13. BISOPROLOL [Concomitant]
     Active Substance: BISOPROLOL
     Dosage: UNK
  14. CYCLOPHOSPHAMIDE. [Suspect]
     Active Substance: CYCLOPHOSPHAMIDE
     Dosage: OTHER
     Route: 058
  15. GEMCITABINE. [Suspect]
     Active Substance: GEMCITABINE
     Indication: B-CELL LYMPHOMA
     Dosage: UNK
     Route: 065
  16. RITUXIMAB. [Suspect]
     Active Substance: RITUXIMAB
     Indication: B-CELL LYMPHOMA
     Dosage: UNK
     Route: 065
  17. RITUXIMAB. [Suspect]
     Active Substance: RITUXIMAB
     Dosage: UNK
     Route: 042
     Dates: start: 20201112, end: 20210127
  18. POLATUZUMAB VEDOTIN. [Suspect]
     Active Substance: POLATUZUMAB VEDOTIN
     Indication: B-CELL LYMPHOMA
     Dosage: UNK
     Route: 042
     Dates: start: 20210413
  19. VALSARTAN/HYDROCHLOROTHIAZIDE [Concomitant]
     Active Substance: HYDROCHLOROTHIAZIDE\VALSARTAN
     Dosage: UNK
  20. DOXORUBICIN [Suspect]
     Active Substance: DOXORUBICIN
     Indication: B-CELL LYMPHOMA
     Dosage: UNK
     Route: 065
  21. CYCLOPHOSPHAMIDE. [Suspect]
     Active Substance: CYCLOPHOSPHAMIDE
     Dosage: UNK
     Route: 042
     Dates: start: 20190814, end: 20191115
  22. GEMCITABINE. [Suspect]
     Active Substance: GEMCITABINE
     Dosage: OTHER
     Route: 042
     Dates: start: 20201112, end: 20210127
  23. METFORMIN [Concomitant]
     Active Substance: METFORMIN HYDROCHLORIDE
     Dosage: UNK
  24. DOXORUBICIN [Suspect]
     Active Substance: DOXORUBICIN
     Dosage: UNK
     Route: 042
     Dates: start: 20201112, end: 20210127
  25. DEXAMETHASONE. [Suspect]
     Active Substance: DEXAMETHASONE
     Indication: B-CELL LYMPHOMA
     Dosage: UNK
     Route: 065
  26. DEXAMETHASONE. [Suspect]
     Active Substance: DEXAMETHASONE
     Dosage: UNK
     Route: 065
     Dates: start: 20201112, end: 20210127
  27. OXALIPLATIN. [Suspect]
     Active Substance: OXALIPLATIN
     Indication: B-CELL LYMPHOMA
     Dosage: UNK
     Route: 065
  28. BENDAMUSTINE HYDROCHLORIDE. [Suspect]
     Active Substance: BENDAMUSTINE HYDROCHLORIDE
     Indication: B-CELL LYMPHOMA
     Dosage: UNK
     Route: 042
     Dates: start: 20210414
  29. PREDNISONE. [Suspect]
     Active Substance: PREDNISONE
     Indication: B-CELL LYMPHOMA
     Dosage: UNK
     Route: 065
  30. PREDNISONE. [Suspect]
     Active Substance: PREDNISONE
     Dosage: OTHER
     Route: 042
     Dates: start: 20190814, end: 20191115
  31. VINCRISTINE [Suspect]
     Active Substance: VINCRISTINE
     Dosage: UNK
     Route: 042
     Dates: start: 20190814, end: 20191115
  32. RITUXIMAB. [Suspect]
     Active Substance: RITUXIMAB
     Indication: B-CELL LYMPHOMA
     Dosage: UNK
     Route: 042
     Dates: start: 20190814, end: 20191115
  33. OXALIPLATIN. [Suspect]
     Active Substance: OXALIPLATIN
     Dosage: UNK
     Route: 058

REACTIONS (3)
  - Off label use [Unknown]
  - Pneumonia bacterial [Unknown]
  - Prostate cancer [Unknown]

NARRATIVE: CASE EVENT DATE: 20191119
